FAERS Safety Report 20928864 (Version 1)
Quarter: 2022Q2

REPORT INFORMATION
  Report Type: Spontaneous
  Country: CL (occurrence: CL)
  Receive Date: 20220607
  Receipt Date: 20220607
  Transmission Date: 20220721
  Serious: Yes (Death)
  Sender: FDA-Public Use
  Company Number: CL-BAXTER-2022BAX011072

PATIENT
  Age: 69 Year
  Sex: Female
  Weight: 83 kg

DRUGS (3)
  1. DIANEAL LOW CALCIUM WITH DEXTROSE [Suspect]
     Active Substance: CALCIUM CHLORIDE\DEXTROSE\MAGNESIUM CHLORIDE\SODIUM CHLORIDE\SODIUM LACTATE
     Indication: Peritoneal dialysis
     Dosage: 6 L, 1 BAG PER DAY
     Route: 033
     Dates: start: 202108, end: 20211205
  2. DIANEAL PD-2 WITH DEXTROSE [Suspect]
     Active Substance: CALCIUM CHLORIDE\DEXTROSE\MAGNESIUM CHLORIDE\SODIUM CHLORIDE\SODIUM LACTATE
     Indication: Peritoneal dialysis
     Dosage: 6 L, 1 BAG PER DAY
     Route: 033
     Dates: start: 202108, end: 20211205
  3. EXTRANEAL [Suspect]
     Active Substance: CALCIUM CHLORIDE\ICODEXTRIN\MAGNESIUM CHLORIDE\SODIUM CHLORIDE\SODIUM LACTATE
     Indication: Peritoneal dialysis
     Dosage: 1 BAG PER DAY
     Route: 033
     Dates: start: 202108, end: 20211205

REACTIONS (1)
  - Death [Fatal]

NARRATIVE: CASE EVENT DATE: 20211205
